FAERS Safety Report 9433831 (Version 1)
Quarter: 2013Q3

REPORT INFORMATION
  Report Type: Spontaneous
  Country: US (occurrence: US)
  Receive Date: 20130731
  Receipt Date: 20130731
  Transmission Date: 20140515
  Serious: No
  Sender: FDA-Public Use
  Company Number: US-ASTRAZENECA-2011SE21145

PATIENT
  Sex: Male
  Weight: 124.7 kg

DRUGS (16)
  1. SEROQUEL [Suspect]
     Route: 048
     Dates: start: 20020101
  2. SEROQUEL [Suspect]
     Route: 048
     Dates: start: 20040518
  3. SEROQUEL [Suspect]
     Route: 048
     Dates: start: 20040519
  4. SEROQUEL [Suspect]
     Route: 048
     Dates: start: 20080222
  5. SEROQUEL [Suspect]
     Route: 048
     Dates: start: 20091110
  6. DEPAKOTE ER [Concomitant]
     Dates: start: 20020101
  7. DEPAKOTE ER [Concomitant]
     Dates: start: 20040518
  8. DEPAKOTE ER [Concomitant]
     Dates: start: 20040519
  9. ZOLOFT [Concomitant]
     Dates: start: 20020101
  10. ZOLOFT [Concomitant]
     Dosage: 1-2 TO 1 QD
     Dates: start: 20040518
  11. ZOLOFT [Concomitant]
     Dates: start: 20040519
  12. KLON [Concomitant]
  13. ROBAXIN [Concomitant]
  14. XANAX [Concomitant]
  15. DEPACOTE [Concomitant]
  16. NALTREXONE [Concomitant]

REACTIONS (1)
  - Diabetic complication [Unknown]
